FAERS Safety Report 16542488 (Version 2)
Quarter: 2019Q3

REPORT INFORMATION
  Report Type: Spontaneous
  Country: US (occurrence: US)
  Receive Date: 20190709
  Receipt Date: 20190726
  Transmission Date: 20191004
  Serious: No
  Sender: FDA-Public Use
  Company Number: US-TEVA-2019-US-1064357

PATIENT

DRUGS (2)
  1. DIAZEPAM TEVA [Suspect]
     Active Substance: DIAZEPAM
     Indication: MUSCLE SPASMS
     Route: 065
  2. DIAZEPAM TEVA [Suspect]
     Active Substance: DIAZEPAM
     Indication: ANXIETY

REACTIONS (3)
  - Somnolence [Unknown]
  - Therapeutic product effect decreased [Unknown]
  - Product substitution issue [Unknown]
